FAERS Safety Report 21088955 (Version 3)
Quarter: 2022Q3

REPORT INFORMATION
  Report Type: Spontaneous
  Country: US (occurrence: US)
  Receive Date: 20220715
  Receipt Date: 20220727
  Transmission Date: 20221026
  Serious: Yes (Other)
  Sender: FDA-Public Use
  Company Number: US-PFIZER INC-202200957234

PATIENT
  Age: 53 Year
  Sex: Female
  Weight: 81.633 kg

DRUGS (3)
  1. LYRICA [Suspect]
     Active Substance: PREGABALIN
     Indication: Fibromyalgia
     Dosage: 1 CAPSULE IN THE MORNING AND 2 CAPSULE IN THE EVENING
  2. LYRICA [Suspect]
     Active Substance: PREGABALIN
     Indication: Arthritis
  3. LYRICA [Suspect]
     Active Substance: PREGABALIN
     Indication: Osteoarthritis

REACTIONS (13)
  - Suicidal ideation [Unknown]
  - Hip arthroplasty [Unknown]
  - Knee arthroplasty [Unknown]
  - Carpal tunnel decompression [Unknown]
  - Aggression [Unknown]
  - Illusion [Not Recovered/Not Resolved]
  - Confusional state [Not Recovered/Not Resolved]
  - Essential tremor [Unknown]
  - Weight increased [Unknown]
  - Hostility [Unknown]
  - Delusional perception [Unknown]
  - Anger [Not Recovered/Not Resolved]
  - Anxiety [Not Recovered/Not Resolved]

NARRATIVE: CASE EVENT DATE: 20210401
